FAERS Safety Report 11419778 (Version 1)
Quarter: 2015Q3

REPORT INFORMATION
  Report Type: Spontaneous
  Country: US (occurrence: None)
  Receive Date: 20150825
  Receipt Date: 20150825
  Transmission Date: 20151125
  Serious: Yes (Life-Threatening, Hospitalization)
  Sender: FDA-Public Use
  Company Number: None

PATIENT
  Age: 59 Year
  Sex: Female
  Weight: 113.4 kg

DRUGS (11)
  1. ESCZITALOPRAM [Concomitant]
  2. GABAPENTIN. [Concomitant]
     Active Substance: GABAPENTIN
  3. VITAMIN C [Concomitant]
     Active Substance: ASCORBIC ACID
  4. MULTIPLE VITAMINS [Concomitant]
     Active Substance: VITAMINS
  5. TRAMADOL. [Concomitant]
     Active Substance: TRAMADOL
  6. CYCLOBENZAPRINE [Concomitant]
     Active Substance: CYCLOBENZAPRINE
  7. TRIAMTERENE AND HYDROCHLOROTHIAZIDE [Concomitant]
     Active Substance: HYDROCHLOROTHIAZIDE\TRIAMTERENE
  8. METFORMIN [Concomitant]
     Active Substance: METFORMIN HYDROCHLORIDE
  9. ALLOPURINOL. [Suspect]
     Active Substance: ALLOPURINOL
     Indication: GOUT
  10. LEXAPRO [Concomitant]
     Active Substance: ESCITALOPRAM OXALATE
  11. MAGNESIUM [Concomitant]
     Active Substance: MAGNESIUM

REACTIONS (11)
  - Renal failure [None]
  - Diarrhoea [None]
  - Erythema [None]
  - Nausea [None]
  - Pain in extremity [None]
  - Pain [None]
  - Vomiting [None]
  - Liver injury [None]
  - Scab [None]
  - Influenza like illness [None]
  - Lip swelling [None]

NARRATIVE: CASE EVENT DATE: 20141127
